FAERS Safety Report 5048995-X (Version None)
Quarter: 2006Q3

REPORT INFORMATION
  Report Type: 
  Country: None (occurrence: None)
  Receive Date: 20060712
  Receipt Date: 20051117
  Transmission Date: 20061208
  Serious: No
  Sender: FDA-Public Use
  Company Number: US-GLAXOSMITHKLINE-A0582760A

PATIENT
  Age: 30 Year
  Sex: Male

DRUGS (3)
  1. IMITREX [Suspect]
     Indication: MIGRAINE
     Dosage: 50MG AS REQUIRED
     Route: 048
     Dates: start: 20040101, end: 20050101
  2. DEMEROL [Concomitant]
  3. ALBUTEROL SPIROS [Concomitant]

REACTIONS (1)
  - DRUG INEFFECTIVE [None]
